FAERS Safety Report 6875435-8 (Version None)
Quarter: 2010Q3

REPORT INFORMATION
  Report Type: 
  Country: None (occurrence: None)
  Receive Date: 20100727
  Receipt Date: 20070702
  Transmission Date: 20110219
  Serious: Yes (Hospitalization, Other)
  Sender: FDA-Public Use
  Company Number: US-PFIZER INC-2006147036

PATIENT
  Sex: Male
  Weight: 83.9 kg

DRUGS (5)
  1. CELEBREX [Suspect]
     Indication: PAIN
     Route: 048
     Dates: start: 19990819, end: 20050401
  2. VIOXX [Suspect]
     Indication: PAIN
     Dates: start: 20000101, end: 20010101
  3. ACETYLSALICYLIC ACID SRT [Concomitant]
     Indication: ISCHAEMIC HEART DISEASE PROPHYLAXIS
     Dates: start: 19900101
  4. AVANDIA [Concomitant]
     Indication: DIABETES MELLITUS
     Dates: start: 19960101
  5. FUROSEMIDE [Concomitant]
     Indication: HYPERTENSION
     Dates: start: 19600101, end: 20050101

REACTIONS (1)
  - CEREBROVASCULAR ACCIDENT [None]
